FAERS Safety Report 5199858-0 (Version None)
Quarter: 2007Q1

REPORT INFORMATION
  Report Type: 
  Country: None (occurrence: None)
  Receive Date: 20070103
  Receipt Date: 20070103
  Transmission Date: 20070707
  Serious: Yes (Other)
  Sender: FDA-Public Use
  Company Number: None

PATIENT
  Age: 56 Year
  Sex: Female
  Weight: 74.8435 kg

DRUGS (11)
  1. NAMENDA [Suspect]
     Indication: COGNITIVE DISORDER
     Dosage: 5 MG 2 X DAY PO
     Route: 048
     Dates: start: 20061221, end: 20061229
  2. NAMENDA [Suspect]
     Indication: POST CONCUSSION SYNDROME
     Dosage: 5 MG 2 X DAY PO
     Route: 048
     Dates: start: 20061221, end: 20061229
  3. CYMBALTA [Concomitant]
  4. DEXTROAMPHETAMINE [Concomitant]
  5. VITAMIN D [Concomitant]
  6. VALTREX [Concomitant]
  7. LEVOTHROID [Concomitant]
  8. ASTELIN [Concomitant]
  9. FLUTICASONE PROPIONATE [Concomitant]
  10. TUMS EX [Concomitant]
  11. CENTRUM SILVER [Concomitant]

REACTIONS (10)
  - AGITATION [None]
  - ANGER [None]
  - APATHY [None]
  - CONDITION AGGRAVATED [None]
  - CRYING [None]
  - DEPRESSION [None]
  - DISSOCIATION [None]
  - HEADACHE [None]
  - HYPERSOMNIA [None]
  - STRESS [None]
